FAERS Safety Report 9230393 (Version 1)
Quarter: 2013Q1

REPORT INFORMATION
  Report Type: Spontaneous
  Country: US (occurrence: None)
  Receive Date: 20121019
  Receipt Date: 20121019
  Transmission Date: 20140127
  Serious: Yes (Other)
  Sender: FDA-Public Use
  Company Number: 2012P1041069

PATIENT
  Age: 54 Year
  Sex: Male
  Weight: 77.11 kg

DRUGS (6)
  1. FENTANYL PATCH [Suspect]
     Indication: PAIN
     Dosage: 1 PATCH; Q48H;
     Dates: start: 20120611, end: 20120614
  2. AVAPRO [Concomitant]
  3. SIMVASTATIN [Concomitant]
  4. HCTZ [Concomitant]
  5. POTASSIUM [Concomitant]
  6. OXYCODONE 2.5 MG [Concomitant]

REACTIONS (25)
  - Nausea [None]
  - Chills [None]
  - Hyperhidrosis [None]
  - Anger [None]
  - Bedridden [None]
  - Overdose [None]
  - Cold sweat [None]
  - Confusional state [None]
  - Asthenia [None]
  - Somnolence [None]
  - Insomnia [None]
  - Hallucination, visual [None]
  - Respiratory rate decreased [None]
  - Dizziness [None]
  - Decreased appetite [None]
  - Tinnitus [None]
  - Vision blurred [None]
  - Photophobia [None]
  - Dehydration [None]
  - Weight decreased [None]
  - Liver disorder [None]
  - Abdominal pain [None]
  - Unevaluable event [None]
  - Alcohol intolerance [None]
  - Malaise [None]
